FAERS Safety Report 6291962-9 (Version None)
Quarter: 2009Q3

REPORT INFORMATION
  Report Type: 
  Country: None (occurrence: None)
  Receive Date: 20090729
  Receipt Date: 20090723
  Transmission Date: 20100115
  Serious: Yes (Hospitalization)
  Sender: FDA-Public Use
  Company Number: SPV1-2009-01531

PATIENT
  Age: 61 Year
  Sex: Male
  Weight: 97.5 kg

DRUGS (1)
  1. FOSRENOL [Suspect]
     Dosage: 1000 MG, AT MEALS, ORAL
     Route: 048
     Dates: start: 20050101

REACTIONS (3)
  - ABDOMINAL PAIN [None]
  - BACK PAIN [None]
  - VOMITING [None]
